FAERS Safety Report 20193673 (Version 1)
Quarter: 2021Q4

REPORT INFORMATION
  Report Type: Spontaneous
  Country: US (occurrence: None)
  Receive Date: 20211215
  Receipt Date: 20211215
  Transmission Date: 20220303
  Serious: Yes (Other)
  Sender: FDA-Public Use
  Company Number: None

PATIENT
  Age: 41 Year
  Sex: Male
  Weight: 83.25 kg

DRUGS (1)
  1. REGEN-COV [Suspect]
     Active Substance: CASIRIVIMAB\IMDEVIMAB
     Indication: COVID-19
     Dosage: OTHER FREQUENCY : SINGLE DOSE;?
     Route: 041

REACTIONS (7)
  - Infusion related reaction [None]
  - Chest discomfort [None]
  - Paraesthesia [None]
  - Paraesthesia [None]
  - Burning sensation [None]
  - Discomfort [None]
  - Therapy interrupted [None]

NARRATIVE: CASE EVENT DATE: 20211213
